FAERS Safety Report 8399291-4 (Version None)
Quarter: 2012Q2

REPORT INFORMATION
  Report Type: 
  Country: None (occurrence: None)
  Receive Date: 20120531
  Receipt Date: 20120516
  Transmission Date: 20120825
  Serious: Yes (Hospitalization)
  Sender: FDA-Public Use
  Company Number: JP-UCBSA-048465

PATIENT
  Age: 70 Year
  Sex: Female

DRUGS (25)
  1. FOLIC ACID [Concomitant]
     Dosage: TOTAL DAILY DOSE : 15 MG
     Dates: start: 20110305, end: 20111217
  2. PREDNISOLONE [Concomitant]
     Dosage: TOTAL DAILY DOSE : 5 MG
     Dates: start: 20120202, end: 20120204
  3. PREDNISOLONE [Concomitant]
     Dosage: DAILY DOSE:15 MG
     Dates: start: 20120205, end: 20120209
  4. PREDNISOLONE [Concomitant]
     Dosage: DAILY DOSE: 7.5 MG
     Dates: start: 20120214, end: 20120216
  5. PREDNISOLONE [Concomitant]
     Dosage: DAILY DOSE: 5 MG
     Dates: start: 20120217, end: 20120220
  6. PREDNISOLONE [Concomitant]
     Dosage: DAILY DOSE: 4 MG
     Dates: start: 20120221, end: 20120306
  7. BAZEDOXIFENE ACETATE [Concomitant]
     Dosage: DAILY DOSE:20 MG
     Dates: start: 20111118, end: 20111215
  8. PREDNISOLONE [Concomitant]
     Dosage: DAILY DOSE: 10 MG
     Dates: start: 20120210, end: 20120213
  9. LOXOPROFEN SODIUM HYDRATE [Concomitant]
     Dates: start: 20111224, end: 20120205
  10. PREDNISOLONE [Concomitant]
     Dosage: DAILY DOSE: 3 MG
     Dates: start: 20120307, end: 20120315
  11. KETOPROFEN [Concomitant]
     Dates: start: 20080909
  12. RHEUMATREX [Suspect]
     Dosage: 8MG (4MG-2MG-2MG)
     Route: 048
     Dates: start: 20081114, end: 20101111
  13. CALCITRIOL [Concomitant]
     Dosage: TOTAL DAILY DOSE : 0.25 MCG
     Dates: start: 20090518, end: 20120205
  14. RHEUMATREX [Suspect]
     Dosage: 10 MG (4MG-4MG-2MG)
     Route: 048
     Dates: start: 20110302, end: 20110616
  15. FAMOTIDINE [Concomitant]
     Dosage: TOTAL DAILY DOSE : 20 MG
     Dates: start: 20100916
  16. PREDNISOLONE [Concomitant]
     Dosage: DAILY DOSE: 2 MG
     Dates: start: 20120316, end: 20120329
  17. LOXOPROFEN SODIUM HYDRATE [Concomitant]
     Dates: start: 20111216, end: 20111223
  18. CIMZIA [Suspect]
     Indication: RHEUMATOID ARTHRITIS
     Route: 058
     Dates: start: 20110113, end: 20111220
  19. CIMZIA [Suspect]
     Dosage: PREVIOUS STUDY : 275-08-001, 08-JUN-2009 TO UNK (200MG/2WEEKS), UNK TO 02-DEC-2009 (100MG/2WEEKS)
     Route: 058
     Dates: start: 20091216, end: 20101216
  20. RHEUMATREX [Suspect]
     Dosage: 6 MG(2MG-2MG-2MG)
     Route: 048
     Dates: start: 20101117, end: 20101125
  21. PREDNISOLONE [Concomitant]
     Dosage: TOTAL DAILY DOSE : 1 MG
     Dates: start: 20111021
  22. PREDNISOLONE [Concomitant]
     Dosage: DAILY DOSE 1 MG
     Dates: start: 20120330, end: 20120412
  23. RHEUMATREX [Suspect]
     Indication: RHEUMATOID ARTHRITIS
     Dosage: DOSE: 4MG-4MG-4MG
     Route: 048
     Dates: start: 20110622, end: 20111215
  24. RHEUMATREX [Suspect]
     Dosage: 8MG (4MG-2MG-2MG)
     Route: 048
     Dates: start: 20101201, end: 20110224
  25. ASCORBIC ACID_CALCIUM PANTOTHENATE [Concomitant]
     Dosage: TOTAL DAILY DOSE : 1 G
     Dates: start: 20101117

REACTIONS (1)
  - INTERSTITIAL LUNG DISEASE [None]
